FAERS Safety Report 14788339 (Version 2)
Quarter: 2018Q2

REPORT INFORMATION
  Report Type: Spontaneous
  Country: IT (occurrence: IT)
  Receive Date: 20180423
  Receipt Date: 20180613
  Transmission Date: 20180711
  Serious: Yes (Hospitalization)
  Sender: FDA-Public Use
  Company Number: IT-AUROBINDO-AUR-APL-2018-020397

PATIENT
  Age: 29 Year
  Sex: Female

DRUGS (4)
  1. MIRTAZAPINE. [Suspect]
     Active Substance: MIRTAZAPINE
     Indication: MAJOR DEPRESSION
  2. MIRTAZAPINE. [Suspect]
     Active Substance: MIRTAZAPINE
     Indication: DRUG ABUSE
     Dosage: IN TOTAL
     Route: 048
     Dates: start: 20170720, end: 20170720
  3. DELORAZEPAM [Suspect]
     Active Substance: DELORAZEPAM
     Indication: DRUG ABUSE
     Dosage: IN TOTAL
     Route: 048
     Dates: start: 20170720, end: 20170720
  4. DELORAZEPAM [Suspect]
     Active Substance: DELORAZEPAM
     Indication: INSOMNIA

REACTIONS (2)
  - Drug abuse [Not Recovered/Not Resolved]
  - Sopor [Not Recovered/Not Resolved]

NARRATIVE: CASE EVENT DATE: 20170720
